FAERS Safety Report 8850900 (Version 1)
Quarter: 2012Q4

REPORT INFORMATION
  Report Type: 
  Country: US (occurrence: US)
  Receive Date: 20121019
  Receipt Date: 20121019
  Transmission Date: 20130627
  Serious: No
  Sender: FDA-Public Use
  Company Number: US-PFIZER INC-2012259804

PATIENT
  Age: 69 Year
  Sex: Male
  Weight: 77.1 kg

DRUGS (3)
  1. ATORVASTATIN CALCIUM [Suspect]
     Indication: BLOOD CHOLESTEROL INCREASED
     Dosage: 10 mg, once daily
     Route: 048
     Dates: start: 201206, end: 201209
  2. METOPROLOL [Concomitant]
     Indication: HYPERTENSION
     Dosage: 25 mg, two times daily
     Route: 048
  3. LISINOPRIL [Concomitant]
     Indication: HYPERTENSION
     Dosage: 40 mg, once daily
     Route: 048

REACTIONS (6)
  - Asthenia [Unknown]
  - Muscle disorder [Unknown]
  - Pain in extremity [Unknown]
  - Back pain [Unknown]
  - Pain [Unknown]
  - Blood creatine phosphokinase increased [Recovered/Resolved]
